FAERS Safety Report 12479348 (Version 1)
Quarter: 2016Q2

REPORT INFORMATION
  Report Type: Spontaneous
  Country: US (occurrence: None)
  Receive Date: 20160617
  Receipt Date: 20160617
  Transmission Date: 20160815
  Serious: Yes (Hospitalization)
  Sender: FDA-Public Use
  Company Number: None

PATIENT
  Age: 73 Year
  Sex: Male

DRUGS (4)
  1. DEXAMETHASONE. [Suspect]
     Active Substance: DEXAMETHASONE
     Dates: end: 20160528
  2. LENALIDOMIDE (CC-5013) [Suspect]
     Active Substance: LENALIDOMIDE
     Dates: end: 20160530
  3. VELCADE [Suspect]
     Active Substance: BORTEZOMIB
     Dates: end: 20160527
  4. ASPIRIN. [Concomitant]
     Active Substance: ASPIRIN

REACTIONS (5)
  - Therapy cessation [None]
  - Diarrhoea [None]
  - Arterial occlusive disease [None]
  - Vascular stent thrombosis [None]
  - Abdominal discomfort [None]

NARRATIVE: CASE EVENT DATE: 20160608
